FAERS Safety Report 4556585-8 (Version None)
Quarter: 2005Q1

REPORT INFORMATION
  Report Type: 
  Country: None (occurrence: None)
  Receive Date: 20050118
  Receipt Date: 20050104
  Transmission Date: 20050727
  Serious: Yes (Other)
  Sender: FDA-Public Use
  Company Number: 2005004590

PATIENT
  Age: 70 Year
  Sex: Male
  Weight: 104.3273 kg

DRUGS (12)
  1. CELEBREX [Suspect]
     Indication: ARTHRITIS
     Dosage: 200 MG (200 MG, 1 IN 1 D)
     Dates: start: 20041115
  2. ARICEPT [Suspect]
     Indication: DEMENTIA ALZHEIMER'S TYPE
  3. DYAZIDE [Concomitant]
  4. BUPROPION HYDROCHLORIDE [Concomitant]
  5. METFORMIN HCL [Concomitant]
  6. LISINOPRIL [Concomitant]
  7. PROPACET 100 [Concomitant]
  8. ENZYMES (ENZYMES) [Concomitant]
  9. ASPIRIN [Concomitant]
  10. CLONIDINE [Concomitant]
  11. GLYBURIDE [Concomitant]
  12. ROFECOXIB [Concomitant]

REACTIONS (4)
  - BODY HEIGHT DECREASED [None]
  - LIMB INJURY [None]
  - MIGRAINE [None]
  - TRANSIENT ISCHAEMIC ATTACK [None]
